FAERS Safety Report 14141254 (Version 2)
Quarter: 2017Q4

REPORT INFORMATION
  Report Type: Spontaneous
  Country: US (occurrence: US)
  Receive Date: 20171030
  Receipt Date: 20171031
  Transmission Date: 20180321
  Serious: No
  Sender: FDA-Public Use
  Company Number: US-B.I. PHARMACEUTICALS,INC./RIDGEFIELD-2017-BI-057437

PATIENT
  Age: 65 Year
  Sex: Female

DRUGS (9)
  1. CYMBALTA [Concomitant]
     Active Substance: DULOXETINE HYDROCHLORIDE
     Indication: PAIN
     Dosage: ONCE DAILY;  FORM STRENGTH: 90MG; FORMULATION: CAPSULE
     Route: 048
  2. HYDROXYCHLOROQUINE [Concomitant]
     Active Substance: HYDROXYCHLOROQUINE
     Indication: SJOGREN^S SYNDROME
     Dosage: ONCE DAILY;  FORM STRENGTH: 200MG; FORMULATION: CAPLET
     Route: 048
     Dates: start: 1994
  3. METOPROLOL. [Concomitant]
     Active Substance: METOPROLOL
     Indication: TACHYCARDIA
     Dosage: ONCE DAILY;  FORM STRENGTH: 100MG; FORMULATION: TABLET
     Route: 048
     Dates: start: 201708
  4. LEVOTHYROXINE. [Concomitant]
     Active Substance: LEVOTHYROXINE
     Indication: AUTOIMMUNE THYROIDITIS
     Dosage: ONCE DAILY;  FORM STRENGTH: 100MG; FORMULATION: TABLET
     Route: 048
  5. WELLBUTRIN [Concomitant]
     Active Substance: BUPROPION HYDROCHLORIDE
     Indication: DEPRESSION
     Dosage: TID;  FORM STRENGTH: 75MG; FORMULATION: TABLET
     Route: 048
     Dates: start: 201707
  6. PRADAXA [Suspect]
     Active Substance: DABIGATRAN ETEXILATE MESYLATE
     Indication: ATRIAL FIBRILLATION
     Route: 048
     Dates: start: 20171011
  7. FENTANYL TRANSDERMAL SYSTEM [Concomitant]
     Active Substance: FENTANYL
     Indication: FIBROMYALGIA
     Dosage: ONCE EVERY THREE DAYS;  FORM STRENGTH: 75MCG; FORMULATION: PATCH
     Route: 061
     Dates: start: 2013
  8. OMEPRAZOLE. [Concomitant]
     Active Substance: OMEPRAZOLE
     Indication: GASTROOESOPHAGEAL REFLUX DISEASE
     Dosage: BID;  FORM STRENGTH: 20MG; FORMULATION: TABLET
     Route: 048
     Dates: start: 1995
  9. TRAZODONE [Concomitant]
     Active Substance: TRAZODONE HYDROCHLORIDE
     Indication: SLEEP DISORDER
     Dosage: ONCE DAILY;  FORM STRENGTH: 100MG; FORMULATION: TABLET
     Route: 048
     Dates: start: 2011

REACTIONS (2)
  - Somnolence [Not Recovered/Not Resolved]
  - Fatigue [Not Recovered/Not Resolved]

NARRATIVE: CASE EVENT DATE: 20171011
